FAERS Safety Report 6666414-4 (Version None)
Quarter: 2010Q2

REPORT INFORMATION
  Report Type: 
  Country: None (occurrence: None)
  Receive Date: 20100402
  Receipt Date: 20100219
  Transmission Date: 20101027
  Serious: Yes (Other)
  Sender: FDA-Public Use
  Company Number: CR-PFIZER INC-2010041424

PATIENT
  Sex: Female

DRUGS (4)
  1. ALTRULINE [Suspect]
     Dosage: 25MG FOR THE FIRST 15 DAYS
     Route: 048
  2. ALTRULINE [Suspect]
     Dosage: 50MG FOR THE REMAINING DAY UNTIL COMPLETING 28 DAYS
  3. ALLEGRA [Concomitant]
     Route: 048
  4. HIDROXIL B12 B6 B1 [Concomitant]
     Route: 048

REACTIONS (2)
  - HEADACHE [None]
  - VISION BLURRED [None]
